FAERS Safety Report 8392034-X (Version None)
Quarter: 2012Q2

REPORT INFORMATION
  Report Type: 
  Country: None (occurrence: None)
  Receive Date: 20120529
  Receipt Date: 20120517
  Transmission Date: 20120825
  Serious: Yes (Other)
  Sender: FDA-Public Use
  Company Number: JP-BRISTOL-MYERS SQUIBB COMPANY-16615734

PATIENT

DRUGS (2)
  1. PARAPLATIN AQ [Suspect]
     Indication: SMALL CELL LUNG CANCER STAGE UNSPECIFIED
  2. VEPESID [Suspect]
     Indication: SMALL CELL LUNG CANCER STAGE UNSPECIFIED

REACTIONS (1)
  - ARRHYTHMIA [None]
